FAERS Safety Report 16971889 (Version 3)
Quarter: 2019Q4

REPORT INFORMATION
  Report Type: Spontaneous
  Country: US (occurrence: US)
  Receive Date: 20191029
  Receipt Date: 20191121
  Transmission Date: 20200122
  Serious: Yes (Hospitalization)
  Sender: FDA-Public Use
  Company Number: US-INCYTE CORPORATION-2019IN010540

PATIENT

DRUGS (3)
  1. JAKAFI [Suspect]
     Active Substance: RUXOLITINIB
     Dosage: 5 MILLIGRAM, BID
     Route: 048
     Dates: start: 201908
  2. JAKAFI [Suspect]
     Active Substance: RUXOLITINIB
     Dosage: 20 MILLIGRAM, BID
     Route: 048
     Dates: start: 201909
  3. JAKAFI [Suspect]
     Active Substance: RUXOLITINIB
     Dosage: 10MG AND 5MG, BID
     Route: 048
     Dates: start: 201910

REACTIONS (10)
  - Asthenia [Unknown]
  - Arthralgia [Unknown]
  - Haemoglobin decreased [Unknown]
  - Fatigue [Unknown]
  - Heart rate increased [Unknown]
  - Headache [Unknown]
  - Limb discomfort [Unknown]
  - Nausea [Unknown]
  - Sensory disturbance [Unknown]
  - Visual impairment [Unknown]

NARRATIVE: CASE EVENT DATE: 20191111
